FAERS Safety Report 14873357 (Version 1)
Quarter: 2018Q2

REPORT INFORMATION
  Report Type: Spontaneous
  Country: US (occurrence: US)
  Receive Date: 20180510
  Receipt Date: 20180510
  Transmission Date: 20180711
  Serious: No
  Sender: FDA-Public Use
  Company Number: US-PFIZER INC-2018191053

PATIENT
  Age: 77 Year
  Sex: Female
  Weight: 92.97 kg

DRUGS (2)
  1. NEURONTIN [Suspect]
     Active Substance: GABAPENTIN
     Indication: PAIN
  2. NEURONTIN [Suspect]
     Active Substance: GABAPENTIN
     Indication: BURNING SENSATION
     Dosage: UNK

REACTIONS (1)
  - Drug ineffective for unapproved indication [Unknown]
